FAERS Safety Report 8472663-5 (Version None)
Quarter: 2012Q2

REPORT INFORMATION
  Report Type: 
  Country: None (occurrence: None)
  Receive Date: 20120622
  Receipt Date: 20120622
  Transmission Date: 20120825
  Serious: No
  Sender: FDA-Public Use
  Company Number: None

PATIENT
  Age: 67 Year
  Sex: Male
  Weight: 71.4 kg

DRUGS (2)
  1. MIDAZOLAM [Suspect]
     Indication: COLON CANCER
     Dosage: 2 MG ONCE IV
     Route: 042
     Dates: start: 20100405, end: 20100405
  2. FENTANYL CITRATE [Suspect]
     Dosage: 100 MCG ONCE IV
     Route: 042

REACTIONS (5)
  - ELECTROCARDIOGRAM T WAVE INVERSION [None]
  - BRADYCARDIA [None]
  - HYPERHIDROSIS [None]
  - LETHARGY [None]
  - VENTRICULAR EXTRASYSTOLES [None]
